FAERS Safety Report 6734657-7 (Version None)
Quarter: 2010Q2

REPORT INFORMATION
  Report Type: 
  Country: None (occurrence: None)
  Receive Date: 20100519
  Receipt Date: 20100519
  Transmission Date: 20101027
  Serious: No
  Sender: FDA-Public Use
  Company Number: None

PATIENT
  Age: 77 Year
  Sex: Male
  Weight: 91.6266 kg

DRUGS (1)
  1. TAMSULOSIN HCL [Suspect]
     Dosage: 0.4 MG 1 X AT NIGHT

REACTIONS (4)
  - ERECTILE DYSFUNCTION [None]
  - FEELING ABNORMAL [None]
  - INSOMNIA [None]
  - PRODUCT SUBSTITUTION ISSUE [None]
